FAERS Safety Report 11849459 (Version 1)
Quarter: 2015Q4

REPORT INFORMATION
  Report Type: Spontaneous
  Country: IQ (occurrence: IQ)
  Receive Date: 20151218
  Receipt Date: 20151218
  Transmission Date: 20160305
  Serious: Yes (Death)
  Sender: FDA-Public Use
  Company Number: IQ-SA-2015SA212498

PATIENT

DRUGS (1)
  1. SEFOTAK [Suspect]
     Active Substance: CEFOTAXIME SODIUM
     Dosage: DOSE: 1G VIAL DILUTED IN 10CC OF DEXTROSE WATER.
     Route: 042

REACTIONS (1)
  - Anaphylactic shock [Fatal]
